FAERS Safety Report 25476770 (Version 1)
Quarter: 2025Q2

REPORT INFORMATION
  Report Type: Spontaneous
  Country: DE (occurrence: DE)
  Receive Date: 20250625
  Receipt Date: 20250625
  Transmission Date: 20250717
  Serious: Yes (Life-Threatening, Hospitalization, Other)
  Sender: SANOFI AVENTIS
  Company Number: DE-BoehringerIngelheim-2025-BI-078132

PATIENT
  Age: 53 Year
  Sex: Male

DRUGS (1)
  1. TAMSULOSIN HYDROCHLORIDE [Suspect]
     Active Substance: TAMSULOSIN HYDROCHLORIDE
     Indication: Product used for unknown indication
     Route: 065

REACTIONS (4)
  - Blood pressure decreased [Recovered/Resolved]
  - Dyspnoea [Unknown]
  - Loss of consciousness [Unknown]
  - Drug interaction [Unknown]
